FAERS Safety Report 20889781 (Version 1)
Quarter: 2022Q2

REPORT INFORMATION
  Report Type: Spontaneous
  Country: CA (occurrence: CA)
  Receive Date: 20220530
  Receipt Date: 20220530
  Transmission Date: 20220721
  Serious: Yes (Other)
  Sender: FDA-Public Use
  Company Number: CA-BAUSCH-BL-2022-012812

PATIENT
  Sex: Female

DRUGS (26)
  1. FLUOROURACIL [Suspect]
     Active Substance: FLUOROURACIL
     Indication: Human epidermal growth factor receptor negative
     Route: 065
  2. FLUOROURACIL [Suspect]
     Active Substance: FLUOROURACIL
     Indication: Hormone receptor positive breast cancer
  3. FLUOROURACIL [Suspect]
     Active Substance: FLUOROURACIL
     Indication: Breast cancer metastatic
  4. ABRAXANE [Suspect]
     Active Substance: PACLITAXEL
     Indication: Human epidermal growth factor receptor negative
     Route: 065
  5. ABRAXANE [Suspect]
     Active Substance: PACLITAXEL
     Indication: Hormone receptor positive breast cancer
     Route: 065
  6. EXEMESTANE [Suspect]
     Active Substance: EXEMESTANE
     Indication: Human epidermal growth factor receptor negative
     Route: 065
  7. EXEMESTANE [Suspect]
     Active Substance: EXEMESTANE
     Indication: Hormone receptor positive breast cancer
  8. EXEMESTANE [Suspect]
     Active Substance: EXEMESTANE
     Indication: Breast cancer metastatic
  9. FULVESTRANT [Suspect]
     Active Substance: FULVESTRANT
     Indication: Human epidermal growth factor receptor negative
     Route: 065
  10. FULVESTRANT [Suspect]
     Active Substance: FULVESTRANT
     Indication: Hormone receptor positive breast cancer
  11. FULVESTRANT [Suspect]
     Active Substance: FULVESTRANT
     Indication: Breast cancer metastatic
  12. LETROZOLE [Suspect]
     Active Substance: LETROZOLE
     Indication: Human epidermal growth factor receptor negative
     Route: 065
  13. LETROZOLE [Suspect]
     Active Substance: LETROZOLE
     Indication: Hormone receptor positive breast cancer
  14. LETROZOLE [Suspect]
     Active Substance: LETROZOLE
     Indication: Breast cancer metastatic
  15. CYCLOPHOSPHAMIDE [Suspect]
     Active Substance: CYCLOPHOSPHAMIDE
     Indication: Human epidermal growth factor receptor negative
     Route: 065
  16. CYCLOPHOSPHAMIDE [Suspect]
     Active Substance: CYCLOPHOSPHAMIDE
     Indication: Hormone receptor positive breast cancer
  17. CYCLOPHOSPHAMIDE [Suspect]
     Active Substance: CYCLOPHOSPHAMIDE
     Indication: Breast cancer metastatic
  18. TAMOXIFEN [Suspect]
     Active Substance: TAMOXIFEN
     Indication: Human epidermal growth factor receptor negative
     Route: 048
  19. TAMOXIFEN [Suspect]
     Active Substance: TAMOXIFEN
     Indication: Hormone receptor positive breast cancer
     Route: 048
  20. TAMOXIFEN [Suspect]
     Active Substance: TAMOXIFEN
     Indication: Breast cancer metastatic
  21. TAXOL [Suspect]
     Active Substance: PACLITAXEL
     Indication: Human epidermal growth factor receptor negative
     Route: 030
  22. TAXOL [Suspect]
     Active Substance: PACLITAXEL
     Indication: Hormone receptor positive breast cancer
     Route: 030
  23. TAXOL [Suspect]
     Active Substance: PACLITAXEL
     Indication: Breast cancer metastatic
  24. XELODA [Suspect]
     Active Substance: CAPECITABINE
     Indication: Human epidermal growth factor receptor negative
     Route: 048
  25. XELODA [Suspect]
     Active Substance: CAPECITABINE
     Indication: Hormone receptor positive breast cancer
  26. XELODA [Suspect]
     Active Substance: CAPECITABINE
     Indication: Breast cancer metastatic

REACTIONS (1)
  - Metastasis [Unknown]
